FAERS Safety Report 6142864-X (Version None)
Quarter: 2009Q2

REPORT INFORMATION
  Report Type: 
  Country: None (occurrence: None)
  Receive Date: 20090403
  Receipt Date: 20090401
  Transmission Date: 20091009
  Serious: No
  Sender: FDA-Public Use
  Company Number: US-B.I. PHARMACEUTICALS,INC./RIDGEFIELD-2009-BP-03355BP

PATIENT
  Sex: Male

DRUGS (32)
  1. SPIRIVA [Suspect]
     Indication: CHRONIC OBSTRUCTIVE PULMONARY DISEASE
     Dosage: 18MCG
     Dates: start: 20080101
  2. SPIRIVA [Suspect]
     Indication: ASTHMA
  3. SPIRIVA [Suspect]
     Indication: EMPHYSEMA
  4. SPIRIVA [Suspect]
     Indication: DYSPNOEA
  5. SPIRIVA [Suspect]
     Indication: BRONCHITIS CHRONIC
  6. COMBIVENT [Concomitant]
     Indication: DYSPNOEA
  7. COMBIVENT [Concomitant]
     Indication: CHRONIC OBSTRUCTIVE PULMONARY DISEASE
  8. SEREVENT [Concomitant]
     Indication: DYSPNOEA
  9. SEREVENT [Concomitant]
     Indication: CHRONIC OBSTRUCTIVE PULMONARY DISEASE
  10. FLOVENT [Concomitant]
     Indication: DYSPNOEA
  11. FLOVENT [Concomitant]
     Indication: CHRONIC OBSTRUCTIVE PULMONARY DISEASE
  12. ATENOLOL [Concomitant]
     Indication: CARDIAC DISORDER
  13. ATENOLOL [Concomitant]
     Indication: BLOOD PRESSURE
  14. ISOSORB MONO [Concomitant]
     Indication: CARDIAC DISORDER
  15. ISOSORB MONO [Concomitant]
     Indication: BLOOD PRESSURE
  16. ENDOCET [Concomitant]
     Indication: PAIN
  17. ZOCOR [Concomitant]
     Indication: BLOOD CHOLESTEROL
  18. EFFEXOR XR [Concomitant]
     Indication: DEPRESSION
     Dosage: 300RT
  19. ALPHAGAN [Concomitant]
     Indication: GLAUCOMA
  20. AMBIEN CR [Concomitant]
     Indication: SLEEP DISORDER
     Dosage: 6.25MG
  21. PLAVIX [Concomitant]
     Indication: TRANSIENT ISCHAEMIC ATTACK
     Dosage: 75MG
  22. PLAVIX [Concomitant]
     Indication: CEREBROVASCULAR ACCIDENT
  23. PROTONIX [Concomitant]
     Indication: BARRETT'S OESOPHAGUS
     Dosage: 80MG
  24. DICYCLOMINE [Concomitant]
     Indication: BARRETT'S OESOPHAGUS
     Dosage: 40MG
  25. ALLEGRA [Concomitant]
     Indication: MULTIPLE ALLERGIES
     Dosage: 180MG
  26. TESSALON [Concomitant]
     Indication: MULTIPLE ALLERGIES
  27. IPRATROPIUM BROMIDE [Concomitant]
     Indication: MULTIPLE ALLERGIES
  28. MULTI-VITAMINE/MINERAL [Concomitant]
     Indication: MEDICAL DIET
  29. ANTIOXIDENT [Concomitant]
     Indication: MEDICAL DIET
  30. CALCIUM [Concomitant]
     Indication: MEDICAL DIET
  31. CO Q10 [Concomitant]
     Indication: MEDICAL DIET
  32. FLAX OIL [Concomitant]
     Indication: MEDICAL DIET

REACTIONS (2)
  - DRUG INEFFECTIVE [None]
  - SLEEP APNOEA SYNDROME [None]
